FAERS Safety Report 12045940 (Version 1)
Quarter: 2016Q1

REPORT INFORMATION
  Report Type: Other
  Country: OM (occurrence: OM)
  Receive Date: 20160208
  Receipt Date: 20160208
  Transmission Date: 20160526
  Serious: Yes (Other)
  Sender: FDA-Public Use
  Company Number: OM-DEXPHARM-20160121

PATIENT
  Age: 46 Year
  Sex: Male

DRUGS (1)
  1. DICLOFENAC [Suspect]
     Active Substance: DICLOFENAC
     Indication: BACK PAIN
     Dosage: 100 MG DAILY

REACTIONS (1)
  - Photoonycholysis [Recovered/Resolved]
